FAERS Safety Report 23602019 (Version 1)
Quarter: 2024Q1

REPORT INFORMATION
  Report Type: Spontaneous
  Country: JP (occurrence: JP)
  Receive Date: 20240306
  Receipt Date: 20240306
  Transmission Date: 20240410
  Serious: Yes (Hospitalization)
  Sender: FDA-Public Use
  Company Number: JP-ABBVIE-5661905

PATIENT
  Age: 35 Year
  Sex: Male

DRUGS (10)
  1. ASENAPINE MALEATE [Suspect]
     Active Substance: ASENAPINE MALEATE
     Indication: Schizophrenia
     Route: 060
     Dates: start: 20161229, end: 2017
  2. ASENAPINE MALEATE [Suspect]
     Active Substance: ASENAPINE MALEATE
     Indication: Schizophrenia
     Route: 060
     Dates: start: 2017, end: 2017
  3. ASENAPINE MALEATE [Suspect]
     Active Substance: ASENAPINE MALEATE
     Indication: Schizophrenia
     Route: 060
     Dates: start: 20161219
  4. ASENAPINE MALEATE [Suspect]
     Active Substance: ASENAPINE MALEATE
     Indication: Schizophrenia
     Route: 060
     Dates: start: 20161215
  5. INVEGA [Concomitant]
     Active Substance: PALIPERIDONE
     Indication: Product used for unknown indication
  6. CLONAZEPAM-R [Concomitant]
     Indication: Product used for unknown indication
     Dosage: TIME INTERVAL: 0.33333333 DAYS
     Route: 048
  7. PALIPERIDONE PALMITATE [Concomitant]
     Active Substance: PALIPERIDONE PALMITATE
     Indication: Product used for unknown indication
  8. BIPERIDEN [Concomitant]
     Active Substance: BIPERIDEN
     Indication: Product used for unknown indication
     Dosage: TIME INTERVAL: 0.33333333 DAYS
     Route: 048
  9. BLONANSERIN [Concomitant]
     Active Substance: BLONANSERIN
     Indication: Product used for unknown indication
     Dosage: TIME INTERVAL: 0.33333333 DAYS
     Route: 065
  10. OLANZAPINE [Concomitant]
     Active Substance: OLANZAPINE
     Indication: Product used for unknown indication
     Route: 048

REACTIONS (20)
  - Cerebral haematoma [Unknown]
  - Strabismus [Unknown]
  - Musculoskeletal stiffness [Unknown]
  - Somnolence [Unknown]
  - Aggression [Unknown]
  - Fall [Unknown]
  - Aggression [Unknown]
  - Strabismus [Unknown]
  - Loss of consciousness [Unknown]
  - Foreign body sensation in eyes [Not Recovered/Not Resolved]
  - Oculogyric crisis [Unknown]
  - Therapeutic response decreased [Unknown]
  - Eyelid retraction [Unknown]
  - Vision blurred [Unknown]
  - Speech disorder [Unknown]
  - Urine output increased [Unknown]
  - Accommodation disorder [Unknown]
  - Panic attack [Unknown]
  - Mental impairment [Unknown]
  - Anal incontinence [Unknown]
